FAERS Safety Report 10219124 (Version 1)
Quarter: 2014Q2

REPORT INFORMATION
  Report Type: Report from Study
  Country: BR (occurrence: BR)
  Receive Date: 20140605
  Receipt Date: 20140605
  Transmission Date: 20141212
  Serious: Yes (Hospitalization)
  Sender: FDA-Public Use
  Company Number: BR-ABBVIE-14P-020-1241866-00

PATIENT
  Age: 33 Year
  Sex: Female
  Weight: 68 kg

DRUGS (5)
  1. HUMIRA [Suspect]
     Indication: CROHN^S DISEASE
     Route: 058
     Dates: start: 20140228, end: 20140228
  2. HUMIRA [Suspect]
     Route: 058
  3. HUMIRA [Suspect]
     Route: 058
     Dates: end: 201404
  4. CLAVULIN BD [Suspect]
     Indication: SINUSITIS
     Route: 048
     Dates: start: 201404
  5. CLAVULIN BD [Suspect]
     Indication: INFLUENZA

REACTIONS (20)
  - Dysbacteriosis [Unknown]
  - Crohn^s disease [Unknown]
  - Abdominal pain [Not Recovered/Not Resolved]
  - Malaise [Not Recovered/Not Resolved]
  - Diarrhoea [Recovering/Resolving]
  - Abdominal rigidity [Not Recovered/Not Resolved]
  - Abdominal distension [Not Recovered/Not Resolved]
  - Enteritis [Unknown]
  - Gastrointestinal inflammation [Unknown]
  - Enteritis [Unknown]
  - Nausea [Unknown]
  - Gastric disorder [Unknown]
  - Anal fissure [Unknown]
  - Pain [Unknown]
  - Colitis [Unknown]
  - Oedema [Unknown]
  - Gastrointestinal erosion [Unknown]
  - Clostridium difficile infection [Unknown]
  - Sinusitis [Recovered/Resolved]
  - Immunodeficiency [Unknown]
